FAERS Safety Report 6132541-3 (Version None)
Quarter: 2009Q1

REPORT INFORMATION
  Report Type: 
  Country: None (occurrence: None)
  Receive Date: 20090324
  Receipt Date: 20090309
  Transmission Date: 20090719
  Serious: Yes (Life-Threatening)
  Sender: FDA-Public Use
  Company Number: 2009S1004375

PATIENT
  Age: 85 Year
  Sex: Male

DRUGS (10)
  1. MELPERONE (MELPERONE) [Suspect]
     Indication: ACCIDENTAL EXPOSURE
     Dosage: 50 MG; DAILY; ORAL
     Route: 048
     Dates: start: 20081221, end: 20081221
  2. TORSEMIDE [Suspect]
     Indication: ACCIDENTAL EXPOSURE
     Dosage: 10 MG; DAILY; ORAL
     Route: 048
     Dates: start: 20081221, end: 20081221
  3. METOPROLOL TARTRATE [Suspect]
     Indication: HYPERTENSION
     Dosage: 25 MG; DAILY; ORAL
     Route: 048
  4. RISPERIDONE [Suspect]
     Indication: ACCIDENTAL EXPOSURE
     Dosage: 2 MG; DAILY; ORAL
     Route: 048
     Dates: start: 20081221, end: 20081221
  5. DIGITOXIN INJ [Suspect]
     Indication: ACCIDENTAL EXPOSURE
     Dosage: 0.07 MG; DAILY; ORAL
     Route: 048
     Dates: start: 20081221, end: 20081221
  6. PENTAERYTHIRITOL TETRANITRATE TAB [Suspect]
     Indication: ACCIDENTAL EXPOSURE
     Dosage: 80 MG; DAILY; ORAL
     Route: 048
     Dates: start: 20081221, end: 20081221
  7. ISCOVER [Concomitant]
  8. KREON /00014701/ [Concomitant]
  9. NOVALGIN [Concomitant]
  10. RAMIPRIL [Concomitant]

REACTIONS (5)
  - ACCIDENTAL EXPOSURE [None]
  - BLOOD POTASSIUM DECREASED [None]
  - DRUG INTERACTION [None]
  - SINUS BRADYCARDIA [None]
  - SOMNOLENCE [None]
